FAERS Safety Report 4970662-9 (Version None)
Quarter: 2006Q2

REPORT INFORMATION
  Report Type: 
  Country: None (occurrence: None)
  Receive Date: 20060412
  Receipt Date: 20050107
  Transmission Date: 20061013
  Serious: Yes (Hospitalization, Other)
  Sender: FDA-Public Use
  Company Number: US-MERCK-0501USA02335

PATIENT
  Age: 68 Year
  Sex: Male
  Weight: 89 kg

DRUGS (2)
  1. VIOXX [Suspect]
     Indication: BACK PAIN
     Route: 048
     Dates: start: 19990401, end: 19990601
  2. VIOXX [Suspect]
     Route: 048
     Dates: start: 20010503, end: 20010504

REACTIONS (20)
  - ANEURYSM [None]
  - ARTERIOSCLEROSIS CORONARY ARTERY [None]
  - ATRIAL FIBRILLATION [None]
  - BACK DISORDER [None]
  - CARDIAC DISORDER [None]
  - CARDIAC FAILURE CONGESTIVE [None]
  - CARDIOMEGALY [None]
  - CEREBROVASCULAR ACCIDENT [None]
  - CHEST PAIN [None]
  - CORONARY ARTERY DISEASE [None]
  - CORONARY ARTERY OCCLUSION [None]
  - COUGH [None]
  - DIPLOPIA [None]
  - GASTROOESOPHAGEAL REFLUX DISEASE [None]
  - HEART VALVE INSUFFICIENCY [None]
  - HYPERTHYROIDISM [None]
  - INTERMITTENT CLAUDICATION [None]
  - STREPTOCOCCAL INFECTION [None]
  - TRANSIENT ISCHAEMIC ATTACK [None]
  - URINARY TRACT INFECTION [None]
